FAERS Safety Report 25956171 (Version 1)
Quarter: 2025Q4

REPORT INFORMATION
  Report Type: Spontaneous
  Country: US (occurrence: None)
  Receive Date: 20251023
  Receipt Date: 20251023
  Transmission Date: 20260118
  Serious: Yes (Other)
  Sender: FDA-CTU
  Company Number: None

PATIENT
  Age: 49 Year
  Sex: Female

DRUGS (1)
  1. TAFINLAR [Suspect]
     Active Substance: DABRAFENIB MESYLATE
     Dosage: : 2MG AND 15 MG DAILY AND TWICE DAILY ?OTHER FREQUENCY :  DAILY AND TWICE DAILY;?

REACTIONS (1)
  - Septic shock [None]
